FAERS Safety Report 7612110-6 (Version None)
Quarter: 2011Q3

REPORT INFORMATION
  Report Type: 
  Country: None (occurrence: None)
  Receive Date: 20110715
  Receipt Date: 20110705
  Transmission Date: 20111222
  Serious: No
  Sender: FDA-Public Use
  Company Number: DE-ELI_LILLY_AND_COMPANY-DE201105000451

PATIENT
  Sex: Male
  Weight: 79 kg

DRUGS (2)
  1. HUMULIN R [Suspect]
     Indication: DIABETES MELLITUS
     Dosage: 24 DF, UNK
     Route: 058
  2. HUMALOG [Suspect]
     Indication: DIABETES MELLITUS
     Dosage: 26 DF, UNK

REACTIONS (1)
  - HYPERSENSITIVITY [None]
